FAERS Safety Report 18635838 (Version 1)
Quarter: 2020Q4

REPORT INFORMATION
  Report Type: Spontaneous
  Country: US (occurrence: US)
  Receive Date: 20201218
  Receipt Date: 20201218
  Transmission Date: 20210114
  Serious: Yes (Hospitalization, Other)
  Sender: FDA-Public Use
  Company Number: US-SA-2020SA361428

PATIENT

DRUGS (2)
  1. METFORMIN HYDROCHLORIDE. [Concomitant]
     Active Substance: METFORMIN HYDROCHLORIDE
     Dosage: UNK
     Route: 065
  2. LANTUS SOLOSTAR [Suspect]
     Active Substance: INSULIN GLARGINE
     Dosage: 50 IU IN AM (MORNING) AND 50 IU IN PM (EVENING OR NIGHT), TWICE DAILY
     Route: 065
     Dates: start: 2018

REACTIONS (5)
  - Blood glucose increased [Unknown]
  - Injection site pain [Unknown]
  - Device operational issue [Unknown]
  - Sepsis [Unknown]
  - Inappropriate schedule of product administration [Unknown]

NARRATIVE: CASE EVENT DATE: 2018
